FAERS Safety Report 6524107-8 (Version None)
Quarter: 2009Q4

REPORT INFORMATION
  Report Type: 
  Country: None (occurrence: None)
  Receive Date: 20091231
  Receipt Date: 20091217
  Transmission Date: 20100525
  Serious: Yes (Hospitalization)
  Sender: FDA-Public Use
  Company Number: AT-GENENTECH-296277

PATIENT
  Sex: Female
  Weight: 83 kg

DRUGS (1)
  1. RITUXIMAB [Suspect]
     Indication: B-CELL LYMPHOMA
     Dosage: 720 MG, UNK
     Route: 042
     Dates: start: 20080925

REACTIONS (1)
  - CENTRAL NERVOUS SYSTEM LESION [None]
